FAERS Safety Report 19576094 (Version 1)
Quarter: 2021Q3

REPORT INFORMATION
  Report Type: Spontaneous
  Country: US (occurrence: US)
  Receive Date: 20210718
  Receipt Date: 20210718
  Transmission Date: 20211014
  Serious: Yes (Other)
  Sender: FDA-Public Use
  Company Number: None

PATIENT
  Age: 65 Year
  Sex: Female
  Weight: 58.5 kg

DRUGS (7)
  1. LEVOTHYROXINE. [Concomitant]
     Active Substance: LEVOTHYROXINE
  2. WAKER [Concomitant]
  3. WOMEN 50 PLUS DAILY VITAMIN [Concomitant]
  4. CANE [Concomitant]
  5. OCRELIZUMAB 600 MG [Suspect]
     Active Substance: OCRELIZUMAB
     Indication: MULTIPLE SCLEROSIS
     Dosage: QUANTITY:3 INFUSION BAG;OTHER FREQUENCY:SIX MOS;OTHER ROUTE:EVERY SIX MONTH INFUSION?
     Dates: start: 20181015, end: 20201214
  6. VITAMIN D [Concomitant]
     Active Substance: VITAMIN D NOS
  7. ROSUVASTATIN. [Concomitant]
     Active Substance: ROSUVASTATIN

REACTIONS (1)
  - Breast cancer [None]

NARRATIVE: CASE EVENT DATE: 20210503
